FAERS Safety Report 4285399-1 (Version None)
Quarter: 2004Q1

REPORT INFORMATION
  Report Type: 
  Country: None (occurrence: None)
  Receive Date: 20040203
  Receipt Date: 20040203
  Transmission Date: 20041129
  Serious: Yes (Hospitalization)
  Sender: FDA-Public Use
  Company Number: None

PATIENT
  Age: 77 Year
  Sex: Male
  Weight: 70.5 kg

DRUGS (2)
  1. CARBAMAZEPINE [Suspect]
  2. ERYTHROMYCIN [Suspect]

REACTIONS (12)
  - EOSINOPHILIA [None]
  - HYPERSENSITIVITY [None]
  - HYPERTENSION [None]
  - LIVER FUNCTION TEST ABNORMAL [None]
  - ODYNOPHAGIA [None]
  - ORAL DISCOMFORT [None]
  - PAIN [None]
  - PHARYNGOLARYNGEAL PAIN [None]
  - RASH ERYTHEMATOUS [None]
  - RENAL FAILURE ACUTE [None]
  - STEVENS-JOHNSON SYNDROME [None]
  - SWELLING [None]
